FAERS Safety Report 23210565 (Version 1)
Quarter: 2023Q4

REPORT INFORMATION
  Report Type: Spontaneous
  Country: US (occurrence: US)
  Receive Date: 20231121
  Receipt Date: 20231121
  Transmission Date: 20240109
  Serious: Yes (Hospitalization, Other)
  Sender: FDA-Public Use
  Company Number: US-drreddys-LIT/USA/23/0183465

PATIENT
  Age: 41 Year
  Sex: Male

DRUGS (4)
  1. CLOPIDOGREL [Suspect]
     Active Substance: CLOPIDOGREL BISULFATE
     Indication: Coronary artery thrombosis
  2. HEPARIN SODIUM [Suspect]
     Active Substance: HEPARIN SODIUM
     Indication: Coronary artery thrombosis
  3. micropuncture [Concomitant]
     Indication: Catheterisation cardiac
  4. PRASUGREL [Concomitant]
     Active Substance: PRASUGREL
     Indication: Coronary artery thrombosis

REACTIONS (3)
  - Peripheral ischaemia [Unknown]
  - Arterial occlusive disease [Unknown]
  - Drug ineffective [Unknown]
